FAERS Safety Report 4707007-5 (Version None)
Quarter: 2005Q3

REPORT INFORMATION
  Report Type: 
  Country: None (occurrence: None)
  Receive Date: 20050705
  Receipt Date: 20050705
  Transmission Date: 20060218
  Serious: No
  Sender: FDA-Public Use
  Company Number: None

PATIENT
  Sex: Male

DRUGS (1)
  1. AMIODARONE HCL [Suspect]

REACTIONS (5)
  - ATRIAL FIBRILLATION [None]
  - BLOOD GLUCOSE FLUCTUATION [None]
  - PNEUMONITIS [None]
  - PNEUMOTHORAX [None]
  - PULMONARY TOXICITY [None]
